FAERS Safety Report 7238398-1 (Version None)
Quarter: 2011Q1

REPORT INFORMATION
  Report Type: 
  Country: None (occurrence: None)
  Receive Date: 20110121
  Receipt Date: 20110114
  Transmission Date: 20110831
  Serious: Yes (Death, Other)
  Sender: FDA-Public Use
  Company Number: FR-SANOFI-AVENTIS-2010SA057365

PATIENT
  Age: 40 Year
  Sex: Female

DRUGS (16)
  1. EUPANTOL [Suspect]
     Route: 048
     Dates: start: 20100614
  2. AMOXICILLIN AND CLAVULANATE POTASSIUM [Concomitant]
     Route: 048
     Dates: start: 20100614, end: 20100616
  3. ULTRA-LEVURE [Suspect]
     Route: 048
     Dates: start: 20100614
  4. ZOPHREN [Suspect]
     Route: 048
     Dates: start: 20100614
  5. HYDROCORTISONE [Suspect]
     Route: 048
     Dates: start: 20100614
  6. LOVENOX [Concomitant]
     Indication: THROMBOSIS PROPHYLAXIS
     Route: 058
     Dates: start: 20100602, end: 20100614
  7. SPASFON [Concomitant]
     Route: 048
     Dates: start: 20100614, end: 20100621
  8. LYSODREN [Suspect]
     Indication: ADRENOCORTICAL CARCINOMA
     Route: 048
     Dates: start: 20100604, end: 20100617
  9. TRIMEBUTINE [Concomitant]
     Indication: GASTROINTESTINAL DISORDER
     Route: 048
     Dates: start: 20100618
  10. PRIMPERAN TAB [Concomitant]
     Route: 048
     Dates: start: 20100618
  11. PARACETAMOL [Suspect]
     Route: 048
     Dates: start: 20100614, end: 20100618
  12. AMOXICILLIN AND CLAVULANATE POTASSIUM [Concomitant]
     Route: 048
     Dates: start: 20100617, end: 20100621
  13. LYSODREN [Suspect]
     Route: 048
     Dates: start: 20100618, end: 20100623
  14. LEXOMIL [Suspect]
     Route: 048
     Dates: start: 20100614
  15. TINZAPARIN SODIUM [Concomitant]
     Route: 058
     Dates: start: 20100615
  16. STILNOX [Suspect]
     Indication: SLEEP DISORDER
     Route: 048
     Dates: start: 20100614

REACTIONS (7)
  - BLOOD LACTATE DEHYDROGENASE INCREASED [None]
  - ALANINE AMINOTRANSFERASE INCREASED [None]
  - GAMMA-GLUTAMYLTRANSFERASE INCREASED [None]
  - CONDITION AGGRAVATED [None]
  - BLOOD ALKALINE PHOSPHATASE INCREASED [None]
  - ASPARTATE AMINOTRANSFERASE INCREASED [None]
  - CYTOLYTIC HEPATITIS [None]
